FAERS Safety Report 11544203 (Version 2)
Quarter: 2016Q3

REPORT INFORMATION
  Report Type: Spontaneous
  Country: FR (occurrence: FR)
  Receive Date: 20150924
  Receipt Date: 20160905
  Transmission Date: 20161109
  Serious: Yes (Hospitalization)
  Sender: FDA-Public Use
  Company Number: FR-ORION CORPORATION ORION PHARMA-ENTC2015-0522

PATIENT
  Age: 65 Year
  Sex: Male

DRUGS (4)
  1. REQUIP [Suspect]
     Active Substance: ROPINIROLE HYDROCHLORIDE
     Indication: PARKINSON^S DISEASE
     Route: 048
     Dates: start: 20150615
  2. GUTRON [Concomitant]
     Active Substance: MIDODRINE
     Route: 065
  3. AZILECT [Suspect]
     Active Substance: RASAGILINE MESYLATE
     Indication: PARKINSON^S DISEASE
     Route: 048
     Dates: start: 201501
  4. STALEVO [Suspect]
     Active Substance: CARBIDOPA\ENTACAPONE\LEVODOPA
     Indication: PARKINSON^S DISEASE
     Route: 048

REACTIONS (10)
  - Musculoskeletal stiffness [Unknown]
  - Heat stroke [Unknown]
  - Areflexia [Unknown]
  - Facial paralysis [Unknown]
  - Posture abnormal [Unknown]
  - Diarrhoea [Unknown]
  - Parkinson^s disease [Unknown]
  - Cerebellar syndrome [Unknown]
  - Cerebral ischaemia [Unknown]
  - Meningitis [Unknown]

NARRATIVE: CASE EVENT DATE: 20150703
